FAERS Safety Report 7410207-7 (Version None)
Quarter: 2011Q2

REPORT INFORMATION
  Report Type: 
  Country: None (occurrence: None)
  Receive Date: 20110412
  Receipt Date: 20110331
  Transmission Date: 20111010
  Serious: Yes (Hospitalization, Other)
  Sender: FDA-Public Use
  Company Number: IE-MEDIMMUNE-MEDI-0012400

PATIENT
  Sex: Male
  Weight: 9.5 kg

DRUGS (3)
  1. SYNAGIS [Suspect]
     Indication: HEART DISEASE CONGENITAL
     Route: 030
     Dates: start: 20101013, end: 20101201
  2. ASPIRIN [Concomitant]
     Route: 048
  3. SYNAGIS [Suspect]
     Indication: PROPHYLAXIS

REACTIONS (4)
  - RESPIRATORY SYNCYTIAL VIRUS TEST POSITIVE [None]
  - RESPIRATORY RATE INCREASED [None]
  - RESPIRATORY TRACT CONGESTION [None]
  - RESPIRATORY SYNCYTIAL VIRUS BRONCHIOLITIS [None]
